FAERS Safety Report 13305713 (Version 1)
Quarter: 2017Q1

REPORT INFORMATION
  Report Type: Spontaneous
  Country: US (occurrence: US)
  Receive Date: 20170308
  Receipt Date: 20170308
  Transmission Date: 20170428
  Serious: Yes (Other)
  Sender: FDA-Public Use
  Company Number: None

PATIENT
  Age: 53 Year
  Sex: Female
  Weight: 63 kg

DRUGS (6)
  1. PROBIOTICS [Concomitant]
     Active Substance: PROBIOTICS NOS
  2. TURMERIC [Concomitant]
     Active Substance: TURMERIC
  3. QUINAPRIL AND HYDROCHLOROTHIAZID [Suspect]
     Active Substance: HYDROCHLOROTHIAZIDE\QUINAPRIL HYDROCHLORIDE
     Indication: BLOOD PRESSURE MEASUREMENT
     Dosage: ?          QUANTITY:1 TABLET(S);?
     Route: 048
     Dates: start: 20170130, end: 20170220
  4. BIOTIN [Concomitant]
     Active Substance: BIOTIN
  5. VITAMIN D3 [Concomitant]
     Active Substance: CHOLECALCIFEROL
  6. VITAMIN C [Concomitant]
     Active Substance: ASCORBIC ACID

REACTIONS (2)
  - Product quality issue [None]
  - Hypersensitivity [None]

NARRATIVE: CASE EVENT DATE: 20170220
